FAERS Safety Report 16420347 (Version 1)
Quarter: 2019Q2

REPORT INFORMATION
  Report Type: Spontaneous
  Country: US (occurrence: US)
  Receive Date: 20190612
  Receipt Date: 20190612
  Transmission Date: 20190711
  Serious: No
  Sender: FDA-Public Use
  Company Number: US-BAYER-2019-112931

PATIENT
  Age: 58 Year
  Sex: Male
  Weight: 116 kg

DRUGS (10)
  1. CLARITIN [Suspect]
     Active Substance: LORATADINE
     Indication: HYPERSENSITIVITY
     Dosage: UNK
     Route: 048
     Dates: start: 201905
  2. CLARITIN [Suspect]
     Active Substance: LORATADINE
     Indication: NASOPHARYNGITIS
     Dosage: 2 DF
     Route: 048
     Dates: start: 201905
  3. CLARITIN [Suspect]
     Active Substance: LORATADINE
     Indication: SNEEZING
  4. ONE A DAY MEN^S HEALTH [Concomitant]
     Active Substance: VITAMINS
  5. CLARITIN [Suspect]
     Active Substance: LORATADINE
     Indication: SNEEZING
  6. CLARITIN [Suspect]
     Active Substance: LORATADINE
     Indication: RHINORRHOEA
  7. CLARITIN [Suspect]
     Active Substance: LORATADINE
     Indication: HYPERSENSITIVITY
     Dosage: 1 DF
     Route: 048
     Dates: start: 201905
  8. CLARITIN [Suspect]
     Active Substance: LORATADINE
     Indication: NASOPHARYNGITIS
     Dosage: 2 DF
     Route: 048
     Dates: start: 201905
  9. CLARITIN [Suspect]
     Active Substance: LORATADINE
     Indication: RHINORRHOEA
  10. POLLEN B [Concomitant]

REACTIONS (2)
  - Extra dose administered [Unknown]
  - Drug ineffective [Unknown]

NARRATIVE: CASE EVENT DATE: 2019
